FAERS Safety Report 8359615-0 (Version None)
Quarter: 2012Q2

REPORT INFORMATION
  Report Type: 
  Country: None (occurrence: None)
  Receive Date: 20120515
  Receipt Date: 20120509
  Transmission Date: 20120825
  Serious: Yes (Other)
  Sender: FDA-Public Use
  Company Number: CO-PFIZER INC-2010125962

PATIENT
  Age: 8 Year
  Sex: Male

DRUGS (4)
  1. GENOTROPIN [Suspect]
     Indication: GROWTH RETARDATION
     Dosage: 0.7 MG, 1X/DAY
     Route: 058
     Dates: start: 20100226
  2. GENOTROPIN [Suspect]
     Indication: BODY HEIGHT BELOW NORMAL
  3. IMIQUIMOD [Concomitant]
     Indication: DRY SKIN
     Dosage: UNK
  4. ACITRETIN [Concomitant]
     Indication: SKIN CANCER
     Dosage: 10 MG, 1X/DAY
     Route: 048

REACTIONS (4)
  - SKIN INJURY [None]
  - NEOPLASM SKIN [None]
  - PYREXIA [None]
  - SWELLING [None]
